FAERS Safety Report 19788094 (Version 1)
Quarter: 2021Q3

REPORT INFORMATION
  Report Type: Spontaneous
  Country: US (occurrence: US)
  Receive Date: 20210903
  Receipt Date: 20210903
  Transmission Date: 20211014
  Serious: No
  Sender: FDA-Public Use
  Company Number: US-DSJP-DSU-2021-128749

PATIENT
  Sex: Female

DRUGS (1)
  1. EVOXAC [Suspect]
     Active Substance: CEVIMELINE HYDROCHLORIDE
     Indication: PRODUCT USED FOR UNKNOWN INDICATION
     Dosage: 1 CAPSULE, 4 TIMES DAILY
     Route: 048

REACTIONS (2)
  - No adverse event [Unknown]
  - Product use issue [Not Recovered/Not Resolved]
